FAERS Safety Report 8785657 (Version 7)
Quarter: 2014Q3

REPORT INFORMATION
  Report Type: Report from Study
  Country: FR (occurrence: FR)
  Receive Date: 20120914
  Receipt Date: 20140801
  Transmission Date: 20150326
  Serious: Yes (Hospitalization)
  Sender: FDA-Public Use
  Company Number: FR-EISAI INC-E7389-02309-CLI-FR

PATIENT
  Age: 44 Year
  Sex: Female
  Weight: 65 kg

DRUGS (5)
  1. EFFERALGAN CODINE [Concomitant]
     Indication: PAIN
  2. EFFERALGAN CODINE [Concomitant]
     Indication: PAIN
     Dosage: UNKNOWN
     Route: 048
     Dates: start: 20120313, end: 20120405
  3. DUROGESIC [Concomitant]
     Active Substance: FENTANYL
     Indication: PAIN
     Dosage: UNKNOWN
     Route: 048
     Dates: start: 20120322, end: 20120417
  4. E7389 (BOLD) [Suspect]
     Active Substance: ERIBULIN MESYLATE
     Indication: BREAST CANCER METASTATIC
     Route: 041
     Dates: start: 20120313, end: 20120405
  5. TOPALGIC [Concomitant]
     Active Substance: TRAMADOL
     Indication: PAIN
     Dosage: UNKNOWN
     Route: 048
     Dates: start: 20120322, end: 20120405

REACTIONS (1)
  - Lymphangiosis carcinomatosa [Not Recovered/Not Resolved]

NARRATIVE: CASE EVENT DATE: 20120405
